FAERS Safety Report 25665532 (Version 3)
Quarter: 2025Q3

REPORT INFORMATION
  Report Type: Spontaneous
  Country: US (occurrence: US)
  Receive Date: 20250811
  Receipt Date: 20250821
  Transmission Date: 20251021
  Serious: No
  Sender: SANDOZ
  Company Number: US-SANDOZ-SDZ2025US056363

PATIENT
  Age: 61 Year
  Sex: Female

DRUGS (1)
  1. ESTRADIOL [Suspect]
     Active Substance: ESTRADIOL
     Indication: Product used for unknown indication
     Dosage: UNK UNK, Q2W (1 PATCH TRANS DERMALLY 2 TIMES PER WEEK)
     Route: 065
     Dates: start: 20250212

REACTIONS (3)
  - Circumstance or information capable of leading to medication error [Unknown]
  - Poor quality device used [Unknown]
  - Device adhesion issue [Unknown]

NARRATIVE: CASE EVENT DATE: 20250710
